FAERS Safety Report 5035148-4 (Version None)
Quarter: 2006Q2

REPORT INFORMATION
  Report Type: 
  Country: None (occurrence: None)
  Receive Date: 20060622
  Receipt Date: 20060615
  Transmission Date: 20061013
  Serious: No
  Sender: FDA-Public Use
  Company Number: STA-AE-06-044

PATIENT
  Age: 64 Year
  Sex: Female

DRUGS (2)
  1. FUROSEMIDE [Suspect]
     Dosage: 250 MG BID
  2. SEVELAMER [Suspect]
     Indication: HYPERPHOSPHATAEMIA
     Dosage: 800 MG BID; 1600 MG QPM

REACTIONS (2)
  - ANURIA [None]
  - DRUG INTERACTION [None]
